FAERS Safety Report 12540933 (Version 1)
Quarter: 2016Q3

REPORT INFORMATION
  Report Type: Spontaneous
  Country: US (occurrence: US)
  Receive Date: 20160708
  Receipt Date: 20160708
  Transmission Date: 20161109
  Serious: No
  Sender: FDA-Public Use
  Company Number: US-ENDO PHARMACEUTICALS INC.-2015-001798

PATIENT
  Age: 38 Year
  Sex: Female
  Weight: 63.56 kg

DRUGS (6)
  1. CLONAZEPAM 0.5MG [Suspect]
     Active Substance: CLONAZEPAM
     Dosage: 1 TABLET 2 OR 3 TIMES DAILY
     Route: 065
     Dates: start: 20150616, end: 20150703
  2. CLONAZEPAM. [Concomitant]
     Active Substance: CLONAZEPAM
     Indication: PANIC ATTACK
     Dosage: TAKE 1 TABLET 2 OR 3 TIMES DAILY
     Route: 065
     Dates: start: 20150704, end: 20150706
  3. ALEVE [Concomitant]
     Active Substance: NAPROXEN SODIUM
     Indication: HEADACHE
     Dosage: TAKE 1 TABLET FOR HEADACHE
     Route: 065
     Dates: start: 20150619
  4. BENADRYL [Concomitant]
     Active Substance: DIPHENHYDRAMINE HYDROCHLORIDE
     Indication: INSOMNIA
     Dosage: TAKE 1 CAPSULE TO SLEEP
     Route: 065
     Dates: start: 20150619, end: 20150619
  5. CLONAZEPAM 0.5MG [Suspect]
     Active Substance: CLONAZEPAM
     Indication: PANIC ATTACK
     Dosage: 1 TABLET 2 OR 3 TIMES DAILY
     Route: 065
     Dates: start: 20150706, end: 20150707
  6. CLONAZEPAM. [Concomitant]
     Active Substance: CLONAZEPAM
     Dosage: TAKE 1 TABLETE 2 OR 3 TIMES DAILY
     Route: 065
     Dates: end: 20150615

REACTIONS (11)
  - Condition aggravated [Not Recovered/Not Resolved]
  - Fatigue [Not Recovered/Not Resolved]
  - Cardiac disorder [Not Recovered/Not Resolved]
  - Headache [Not Recovered/Not Resolved]
  - Feeling abnormal [Not Recovered/Not Resolved]
  - Anxiety [Not Recovered/Not Resolved]
  - Pain in extremity [Not Recovered/Not Resolved]
  - Drug ineffective [Not Recovered/Not Resolved]
  - Feeling abnormal [Not Recovered/Not Resolved]
  - Withdrawal syndrome [Not Recovered/Not Resolved]
  - Somnolence [Not Recovered/Not Resolved]

NARRATIVE: CASE EVENT DATE: 20150616
